FAERS Safety Report 8576902-1 (Version None)
Quarter: 2012Q3

REPORT INFORMATION
  Report Type: 
  Country: None (occurrence: None)
  Receive Date: 20120807
  Receipt Date: 20120727
  Transmission Date: 20120928
  Serious: Yes (Other)
  Sender: FDA-Public Use
  Company Number: US-BRISTOL-MYERS SQUIBB COMPANY-16824740

PATIENT
  Age: 61 Year
  Sex: Male

DRUGS (6)
  1. BLINDED: SAXAGLIPTIN [Suspect]
     Indication: TYPE 2 DIABETES MELLITUS
     Dosage: 2.5 MG OR 5 MG
     Dates: start: 20110421
  2. GLIPIZIDE [Suspect]
     Indication: TYPE 2 DIABETES MELLITUS
  3. METFORMIN HCL [Suspect]
     Indication: TYPE 2 DIABETES MELLITUS
  4. NIACIN [Concomitant]
     Dates: start: 20110421
  5. PLACEBO [Suspect]
     Indication: TYPE 2 DIABETES MELLITUS
     Dates: start: 20110421
  6. ASPIRIN [Concomitant]
     Dates: start: 20120420

REACTIONS (1)
  - OESOPHAGEAL CANDIDIASIS [None]
